FAERS Safety Report 16161537 (Version 2)
Quarter: 2019Q2

REPORT INFORMATION
  Report Type: Spontaneous
  Country: IT (occurrence: IT)
  Receive Date: 20190405
  Receipt Date: 20190510
  Transmission Date: 20190711
  Serious: Yes (Hospitalization, Other)
  Sender: FDA-Public Use
  Company Number: IT-AUROBINDO-AUR-APL-2019-017590

PATIENT

DRUGS (5)
  1. AVASTIN [Interacting]
     Active Substance: BEVACIZUMAB
     Indication: OVARIAN CANCER STAGE III
     Dosage: 15 MILLIGRAM, CYCLICAL
     Route: 042
     Dates: start: 20180718
  2. CARBOPLATIN TEVA [Interacting]
     Active Substance: CARBOPLATIN
     Indication: OVARIAN CANCER STAGE III
     Dosage: UNK
     Route: 042
     Dates: start: 20180627, end: 20181010
  3. PACLITAXEL. [Suspect]
     Active Substance: PACLITAXEL
     Indication: OVARIAN CANCER STAGE III
     Dosage: 175 MILLIGRAM, CYCLICAL
     Route: 042
     Dates: start: 20180627, end: 20181010
  4. EUTIROX [Concomitant]
     Active Substance: LEVOTHYROXINE SODIUM
     Indication: BASEDOW^S DISEASE
     Dosage: UNK
     Route: 065
  5. TRIATEC [Concomitant]
     Indication: HYPERTENSION
     Dosage: UNK
     Route: 065

REACTIONS (4)
  - Guillain-Barre syndrome [Recovering/Resolving]
  - Myalgia [Recovering/Resolving]
  - Peripheral venous disease [Recovering/Resolving]
  - Polyneuropathy [Recovering/Resolving]

NARRATIVE: CASE EVENT DATE: 20190225
